FAERS Safety Report 11096138 (Version 2)
Quarter: 2015Q2

REPORT INFORMATION
  Report Type: Spontaneous
  Country: US (occurrence: US)
  Receive Date: 20150507
  Receipt Date: 20150522
  Transmission Date: 20150821
  Serious: Yes (Death)
  Sender: FDA-Public Use
  Company Number: US-BEH-2015050774

PATIENT
  Age: 82 Year
  Sex: Female
  Weight: 57 kg

DRUGS (23)
  1. ACETAMINOPHEN. [Concomitant]
     Active Substance: ACETAMINOPHEN
     Dosage: 650 MG PRIOR
     Route: 048
  2. MULTIPLE VITAMINS [Concomitant]
     Active Substance: VITAMINS
     Route: 048
  3. PRIVIGEN [Suspect]
     Active Substance: HUMAN IMMUNOGLOBULIN G
     Indication: IMMUNODEFICIENCY COMMON VARIABLE
     Dates: start: 20120216, end: 20150224
  4. EPIPEN [Concomitant]
     Active Substance: EPINEPHRINE
     Dosage: AUTOINJECTOR
     Route: 030
  5. SIMVASTATIN. [Concomitant]
     Active Substance: SIMVASTATIN
     Dosage: 20 MG TABLET
     Route: 048
  6. TRAMADOL [Concomitant]
     Active Substance: TRAMADOL
     Route: 048
  7. HYDROCHLORTHIAZIDE [Concomitant]
     Active Substance: HYDROCHLOROTHIAZIDE
     Dosage: 12.5 MG CAPSULE
     Route: 048
  8. GLUCOSAMINE [Concomitant]
     Active Substance: GLUCOSAMINE
     Dosage: CAPLET
     Route: 048
  9. URSODIOL. [Concomitant]
     Active Substance: URSODIOL
     Dosage: 300 MG
     Route: 048
  10. DIPHENHYDRAMINE [Concomitant]
     Active Substance: DIPHENHYDRAMINE
     Dosage: 25 MG PRIOR
     Route: 048
  11. PRIVIGEN [Suspect]
     Active Substance: HUMAN IMMUNOGLOBULIN G
     Dosage: 5 G VIALS (ONCE EVERY 2 TO 3 MONTHS)
     Route: 042
  12. NORMAL SALINE [Concomitant]
     Active Substance: SODIUM CHLORIDE
     Dosage: 0.9% PRIOR
     Route: 042
  13. OMEGA 3 [Concomitant]
     Active Substance: OMEGA-3 FATTY ACIDS
     Dosage: 1000 MG SOFTGEL CAPSULE
     Route: 048
  14. DIPHENHYDRAMINE HYDROCHLORIDE. [Concomitant]
     Active Substance: DIPHENHYDRAMINE HYDROCHLORIDE
     Dosage: 25 MG PRN
     Route: 042
  15. COENZYME Q10 [Concomitant]
     Active Substance: UBIDECARENONE
     Route: 048
  16. PRILOSEC [Concomitant]
     Active Substance: OMEPRAZOLE MAGNESIUM
     Dosage: 1-2 TIMES DAILY
     Route: 048
  17. VASODIL [Concomitant]
     Dosage: 1 TO 2 TABLETS DAILY (300 TO 600) MG
     Route: 048
  18. FERROUS SULFATE [Concomitant]
     Active Substance: FERROUS SULFATE\FERROUS SULFATE, DRIED
     Route: 048
  19. HEPARIN [Concomitant]
     Active Substance: HEPARIN SODIUM
     Dosage: 100 UNITS/ML FLUSH
     Route: 042
  20. SODIUM CHLORIDE. [Concomitant]
     Active Substance: SODIUM CHLORIDE
     Dosage: 0.9% FLUSH
     Route: 042
  21. FOLPLEX [Concomitant]
     Active Substance: CHOLECALCIFEROL\CYANOCOBALAMIN CO-57\FOLIC ACID\PYRIDOXINE HYDROCHLORIDE
     Route: 048
  22. ASPIRIN. [Concomitant]
     Active Substance: ASPIRIN
     Dosage: 81 MG TABLET DAILY
     Route: 048
  23. SIMCOR [Concomitant]
     Active Substance: NIACIN\SIMVASTATIN
     Dosage: 1000-40 MG
     Route: 048

REACTIONS (1)
  - Death [Fatal]

NARRATIVE: CASE EVENT DATE: 20150423
